FAERS Safety Report 4545205-4 (Version None)
Quarter: 2004Q4

REPORT INFORMATION
  Report Type: 
  Country: None (occurrence: None)
  Receive Date: 20041222
  Receipt Date: 20040817
  Transmission Date: 20050328
  Serious: Yes (Death, Other)
  Sender: FDA-Public Use
  Company Number: USA040875789

PATIENT
  Sex: Male

DRUGS (1)
  1. HUMULIN-HUMAN INSULIN (RDNA) : 25% LISPRO, 75% NPL (LI [Suspect]

REACTIONS (2)
  - FALL [None]
  - HAEMORRHAGE INTRACRANIAL [None]
